FAERS Safety Report 9732949 (Version 3)
Quarter: 2014Q1

REPORT INFORMATION
  Report Type: Spontaneous
  Country: BR (occurrence: BR)
  Receive Date: 20131205
  Receipt Date: 20140120
  Transmission Date: 20141002
  Serious: Yes (Other)
  Sender: FDA-Public Use
  Company Number: BR-ABBVIE-13P-020-1176285-00

PATIENT
  Age: 25 Year
  Sex: Male
  Weight: 80 kg

DRUGS (5)
  1. DEPAKENE [Suspect]
     Indication: EPILEPSY
     Route: 048
     Dates: start: 2001
  2. HIDANTAL [Concomitant]
     Indication: EPILEPSY
     Route: 048
     Dates: start: 2001
  3. HIDANTAL [Concomitant]
     Indication: PRODUCT USED FOR UNKNOWN INDICATION
     Route: 048
  4. HIDANTAL [Concomitant]
     Route: 048
  5. HIDANTAL [Concomitant]
     Route: 042
     Dates: start: 20131117

REACTIONS (4)
  - Convulsion [Recovered/Resolved]
  - Head injury [Recovered/Resolved]
  - Tongue injury [Unknown]
  - Therapeutic response decreased [Unknown]
